FAERS Safety Report 21281154 (Version 1)
Quarter: 2022Q3

REPORT INFORMATION
  Report Type: Spontaneous
  Country: US (occurrence: US)
  Receive Date: 20220901
  Receipt Date: 20220901
  Transmission Date: 20221027
  Serious: Yes (Death, Other)
  Sender: FDA-Public Use
  Company Number: US-PFIZER INC-202201091390

PATIENT
  Age: 50 Year
  Sex: Male

DRUGS (1)
  1. KETOROLAC TROMETHAMINE [Suspect]
     Active Substance: KETOROLAC TROMETHAMINE
     Indication: Headache
     Dosage: UNK
     Route: 030

REACTIONS (14)
  - Necrotising fasciitis [Fatal]
  - Hypoxia [Unknown]
  - Cellulitis [Unknown]
  - Cardiac arrest [Unknown]
  - Soft tissue necrosis [Unknown]
  - Bradycardia [Unknown]
  - Injection site swelling [Unknown]
  - Injection site pain [Unknown]
  - Localised oedema [Unknown]
  - Nausea [Unknown]
  - Vomiting [Unknown]
  - Hypotension [Unknown]
  - Soft tissue haemorrhage [Unknown]
  - Soft tissue inflammation [Unknown]
